FAERS Safety Report 25374145 (Version 2)
Quarter: 2025Q3

REPORT INFORMATION
  Report Type: Spontaneous
  Country: KR (occurrence: KR)
  Receive Date: 20250529
  Receipt Date: 20250709
  Transmission Date: 20251020
  Serious: No
  Sender: PFIZER
  Company Number: KR-PFIZER INC-202500110737

PATIENT

DRUGS (1)
  1. GENOTROPIN [Suspect]
     Active Substance: SOMATROPIN

REACTIONS (1)
  - Device physical property issue [Unknown]
